FAERS Safety Report 15804119 (Version 7)
Quarter: 2019Q3

REPORT INFORMATION
  Report Type: Report from Study
  Country: US (occurrence: US)
  Receive Date: 20190109
  Receipt Date: 20190919
  Transmission Date: 20191004
  Serious: Yes (Hospitalization, Other)
  Sender: FDA-Public Use
  Company Number: US-ACTELION-A-NJ2018-181316

PATIENT
  Age: 59 Year
  Sex: Male
  Weight: 66.67 kg

DRUGS (7)
  1. GABAPENTIN. [Concomitant]
     Active Substance: GABAPENTIN
     Dosage: 900 MG QHS
  2. BUDESONIDE W/FORMOTEROL FUMARATE [Concomitant]
     Active Substance: BUDESONIDE\FORMOTEROL FUMARATE
     Dosage: 160/4.5 BID
  3. OPSUMIT [Suspect]
     Active Substance: MACITENTAN
     Indication: PULMONARY ARTERIAL HYPERTENSION
     Dosage: 10 MG, QD
     Route: 048
     Dates: start: 201702
  4. WARFARIN [Concomitant]
     Active Substance: WARFARIN
  5. LEVOTHYROXINE. [Concomitant]
     Active Substance: LEVOTHYROXINE
     Dosage: 0.05 MG, QD
     Route: 048
  6. SILDENAFIL. [Concomitant]
     Active Substance: SILDENAFIL
     Indication: PULMONARY ARTERIAL HYPERTENSION
     Dosage: 20 MG, TID
     Route: 048
     Dates: start: 2015
  7. AMLODIPINE [Concomitant]
     Active Substance: AMLODIPINE BESYLATE
     Dosage: 10 MG, QD
     Route: 048

REACTIONS (25)
  - Hepatic necrosis [Unknown]
  - Dyspnoea [Unknown]
  - Terminal state [Unknown]
  - Respiratory disorder [Unknown]
  - Hypertension [Unknown]
  - Liver disorder [Unknown]
  - Hepatic mass [Unknown]
  - Hepatitis C antibody positive [Unknown]
  - Nasopharyngitis [Unknown]
  - Cough [Unknown]
  - Spinal stenosis [Unknown]
  - Blood alkaline phosphatase increased [Unknown]
  - Antinuclear antibody positive [Unknown]
  - Ultrasound scan abnormal [Unknown]
  - Memory impairment [Unknown]
  - Pain [Unknown]
  - Chest pain [Recovered/Resolved]
  - Hospice care [Unknown]
  - Cirrhosis alcoholic [Unknown]
  - Biopsy liver [Unknown]
  - Carpal tunnel syndrome [Unknown]
  - Gout [Unknown]
  - Hepatocellular carcinoma [Not Recovered/Not Resolved]
  - Alanine aminotransferase increased [Unknown]
  - Aspartate aminotransferase increased [Unknown]

NARRATIVE: CASE EVENT DATE: 201811
